FAERS Safety Report 24089736 (Version 1)
Quarter: 2024Q3

REPORT INFORMATION
  Report Type: Spontaneous
  Country: IT (occurrence: IT)
  Receive Date: 20240715
  Receipt Date: 20240715
  Transmission Date: 20241016
  Serious: Yes (Death, Other)
  Sender: STRIDES
  Company Number: IT-STRIDES ARCOLAB LIMITED-2024SP008047

PATIENT
  Age: 63 Year
  Sex: Male

DRUGS (15)
  1. PREDNISOLONE [Suspect]
     Active Substance: PREDNISOLONE
     Indication: Primary cardiac lymphoma
     Dosage: UNK, CYCLICAL
     Route: 065
  2. METHOTREXATE [Suspect]
     Active Substance: METHOTREXATE
     Indication: Central nervous system lymphoma
     Dosage: UNK (HIGH-DOSE ADMINISTERED UNDER MATRIX REGIMEN)
     Route: 065
  3. DOXORUBICIN [Suspect]
     Active Substance: DOXORUBICIN
     Indication: Primary cardiac lymphoma
     Dosage: UNK, CYCLICAL
     Route: 065
  4. RITUXIMAB [Suspect]
     Active Substance: RITUXIMAB
     Indication: Primary cardiac lymphoma
     Dosage: UNK, CYCLICAL
     Route: 065
  5. DEXAMETHASONE [Suspect]
     Active Substance: DEXAMETHASONE
     Indication: Primary cardiac lymphoma
     Dosage: UNK, CYCLICAL
     Route: 065
  6. DEXAMETHASONE [Suspect]
     Active Substance: DEXAMETHASONE
     Indication: Immune effector cell-associated neurotoxicity syndrome
  7. CYTARABINE [Suspect]
     Active Substance: CYTARABINE
     Indication: Primary cardiac lymphoma
     Dosage: UNK, CYCLICAL (HIGH DOSE ADMINISTERED UNDER R-DHAOX REGIMEN)
     Route: 065
  8. CYTARABINE [Suspect]
     Active Substance: CYTARABINE
     Indication: Central nervous system lymphoma
     Dosage: UNK (ADMINISTERED UNDER MATRIX REGIMEN)
     Route: 065
  9. OXALIPLATIN [Suspect]
     Active Substance: OXALIPLATIN
     Indication: Primary cardiac lymphoma
     Dosage: UNK, CYCLICAL (ADMINISTERED UNDER R-DHAOX REGIMEN)
     Route: 065
  10. POLATUZUMAB VEDOTIN [Suspect]
     Active Substance: POLATUZUMAB VEDOTIN
     Indication: Primary cardiac lymphoma
     Dosage: UNK
     Route: 065
  11. BENDAMUSTINE [Suspect]
     Active Substance: BENDAMUSTINE
     Indication: Primary cardiac lymphoma
     Dosage: UNK
     Route: 065
  12. TISAGENLECLEUCEL [Suspect]
     Active Substance: TISAGENLECLEUCEL
     Indication: Primary cardiac lymphoma
     Dosage: UNK
     Route: 065
  13. CYCLOPHOSPHAMIDE [Suspect]
     Active Substance: CYCLOPHOSPHAMIDE
     Indication: Primary cardiac lymphoma
     Dosage: UNK, CYCLICAL
     Route: 065
  14. VINCRISTINE [Suspect]
     Active Substance: VINCRISTINE
     Indication: Primary cardiac lymphoma
     Dosage: UNK, CYCLICAL
     Route: 065
  15. METHYLPREDNISOLONE [Concomitant]
     Active Substance: METHYLPREDNISOLONE
     Indication: Immune effector cell-associated neurotoxicity syndrome
     Dosage: 1 MILLIGRAM/KILOGRAM, QD
     Route: 065

REACTIONS (5)
  - Cytokine release syndrome [Unknown]
  - Pyrexia [Unknown]
  - Malignant neoplasm progression [Fatal]
  - Drug ineffective [Fatal]
  - Off label use [Unknown]
